FAERS Safety Report 5242222-6 (Version None)
Quarter: 2007Q1

REPORT INFORMATION
  Report Type: 
  Country: None (occurrence: None)
  Receive Date: 20070212
  Receipt Date: 20070212
  Transmission Date: 20070707
  Serious: Yes (Other)
  Sender: FDA-Public Use
  Company Number: None

PATIENT
  Sex: Female
  Weight: 89.1318 kg

DRUGS (10)
  1. FOSAMAX [Suspect]
     Indication: OSTEOPOROSIS
     Dosage: 70 MG Q WK PO
     Route: 048
     Dates: start: 20030204, end: 20060915
  2. DARVOCET-N 100 [Concomitant]
  3. FLEXERIL [Concomitant]
  4. PROVENTIL [Concomitant]
  5. GLUCOPHAGE [Concomitant]
  6. PRILOSEC [Concomitant]
  7. CA + D [Concomitant]
  8. NORVASC [Concomitant]
  9. LOTENSIN [Concomitant]
  10. LIPITOR [Concomitant]

REACTIONS (2)
  - BONE DISORDER [None]
  - PAIN IN JAW [None]
